FAERS Safety Report 9235687 (Version 1)
Quarter: 2013Q2

REPORT INFORMATION
  Report Type: Spontaneous
  Country: JP (occurrence: JP)
  Receive Date: 20130417
  Receipt Date: 20130417
  Transmission Date: 20140414
  Serious: Yes (Other)
  Sender: FDA-Public Use
  Company Number: JP-JNJFOC-20110903316

PATIENT
  Age: 86 Year
  Sex: Male

DRUGS (6)
  1. RISPERDAL [Suspect]
     Indication: DELIRIUM
     Route: 048
  2. RISPERDAL [Suspect]
     Indication: DELIRIUM
     Route: 048
  3. RISPERDAL [Suspect]
     Indication: RESTLESSNESS
     Route: 048
  4. RISPERDAL [Suspect]
     Indication: RESTLESSNESS
     Route: 048
  5. QUETIAPINE [Suspect]
     Indication: DELIRIUM
     Route: 048
  6. QUETIAPINE [Suspect]
     Indication: RESTLESSNESS
     Route: 048

REACTIONS (3)
  - Neuroleptic malignant syndrome [Recovered/Resolved]
  - Tachypnoea [Recovering/Resolving]
  - Hypoxia [Recovering/Resolving]
